FAERS Safety Report 9034930 (Version 1)
Quarter: 2013Q1

REPORT INFORMATION
  Report Type: Spontaneous
  Country: JP (occurrence: None)
  Receive Date: 20130116
  Receipt Date: 20130116
  Transmission Date: 20140127
  Serious: Yes (Other)
  Sender: FDA-Public Use
  Company Number: 003892

PATIENT
  Age: 80 Year
  Sex: Female

DRUGS (2)
  1. PLETAAL [Suspect]
     Route: 048
     Dates: start: 19910716, end: 19910718
  2. NILVADIPINE (NILVADIPINE) [Concomitant]

REACTIONS (3)
  - Shock [None]
  - Blood pressure systolic decreased [None]
  - Malaise [None]
